FAERS Safety Report 6668403-2 (Version None)
Quarter: 2010Q2

REPORT INFORMATION
  Report Type: 
  Country: None (occurrence: None)
  Receive Date: 20100406
  Receipt Date: 20100324
  Transmission Date: 20101027
  Serious: Yes (Other)
  Sender: FDA-Public Use
  Company Number: PHHY2010GB08378

PATIENT
  Sex: Female
  Weight: 63 kg

DRUGS (10)
  1. CLOZARIL [Suspect]
     Indication: SCHIZOPHRENIA
     Dosage: UNK
     Route: 048
     Dates: start: 20090806, end: 20100204
  2. CLOZARIL [Suspect]
     Dosage: 12.5 MG, UNK
     Route: 048
     Dates: start: 20090922, end: 20091123
  3. CLOZARIL [Suspect]
     Dosage: 18.75 MG, UNK
     Route: 048
     Dates: start: 20091123, end: 20091215
  4. CLOZARIL [Suspect]
     Dosage: 25 MG, UNK
     Route: 048
     Dates: start: 20091215, end: 20100120
  5. CLOZARIL [Suspect]
     Dosage: 31.25 MG, UNK
     Route: 048
     Dates: start: 20100120, end: 20100204
  6. FELODIPINE [Concomitant]
     Dosage: 5 MG, UNK
     Route: 048
     Dates: start: 20090518
  7. FUROSEMIDE [Concomitant]
     Dosage: 40 MG, UNK
     Route: 048
     Dates: start: 20090518
  8. OLMESARTAN MEDOXOMIL [Concomitant]
     Dosage: 20 MG, UNK
     Route: 048
     Dates: start: 20090518
  9. WARFARIN SODIUM [Concomitant]
     Indication: ATRIAL FIBRILLATION
     Dosage: UNK
     Route: 048
     Dates: start: 20090112
  10. DIGOXIN [Concomitant]
     Dosage: 125 UG, UNK
     Route: 048
     Dates: start: 20090518, end: 20100201

REACTIONS (9)
  - BRADYCARDIA [None]
  - CARDIAC DISORDER [None]
  - CARDIOMYOPATHY [None]
  - DYSPNOEA [None]
  - FATIGUE [None]
  - JOINT SWELLING [None]
  - MYOCARDITIS [None]
  - RENAL IMPAIRMENT [None]
  - TROPONIN T INCREASED [None]
